FAERS Safety Report 4644095-9 (Version None)
Quarter: 2005Q2

REPORT INFORMATION
  Report Type: 
  Country: None (occurrence: None)
  Receive Date: 20050425
  Receipt Date: 20050413
  Transmission Date: 20051028
  Serious: Yes (Death)
  Sender: FDA-Public Use
  Company Number: US-JNJFOC-20050305889

PATIENT
  Sex: Female
  Weight: 83.01 kg

DRUGS (17)
  1. REMICADE [Suspect]
     Route: 042
  2. REMICADE [Suspect]
     Route: 042
  3. REMICADE [Suspect]
     Route: 042
  4. REMICADE [Suspect]
     Route: 042
  5. REMICADE [Suspect]
     Route: 042
  6. REMICADE [Suspect]
     Route: 042
  7. REMICADE [Suspect]
     Route: 042
  8. PREDNISONE [Concomitant]
     Indication: RHEUMATOID ARTHRITIS
  9. IMURAN [Concomitant]
     Indication: RHEUMATOID ARTHRITIS
  10. ROBAXIN [Concomitant]
  11. NALFON [Concomitant]
  12. BENADRYL [Concomitant]
     Indication: PREMEDICATION
     Route: 042
  13. SOLU-CORTEF [Concomitant]
     Indication: PREMEDICATION
     Route: 042
  14. ENBREL [Concomitant]
  15. LASIX [Concomitant]
  16. ALDACTONE [Concomitant]
  17. K-DUR 10 [Concomitant]

REACTIONS (13)
  - ABDOMINAL DISTENSION [None]
  - ARTHRALGIA [None]
  - CARDIAC FAILURE [None]
  - CHILLS [None]
  - DIZZINESS [None]
  - HEPATIC FAILURE [None]
  - INFUSION RELATED REACTION [None]
  - MUSCLE SPASMS [None]
  - MUSCLE SPASTICITY [None]
  - MYALGIA [None]
  - NAUSEA [None]
  - OEDEMA [None]
  - THERAPEUTIC RESPONSE DECREASED [None]
